FAERS Safety Report 9182078 (Version 1)
Quarter: 2013Q1

REPORT INFORMATION
  Report Type: Spontaneous
  Country: US (occurrence: None)
  Receive Date: 20120626
  Receipt Date: 20120626
  Transmission Date: 20140127
  Serious: Yes (Other)
  Sender: FDA-Public Use
  Company Number: US-JNJFOC-20110201049

PATIENT
  Age: 55 Year
  Sex: Male
  Weight: 85.28 kg

DRUGS (1)
  1. MS PEPCID AC [Suspect]
     Indication: PRODUCT USED FOR UNKNOWN INDICATION
     Route: 048
     Dates: start: 20110425, end: 20110428

REACTIONS (2)
  - Overdose [None]
  - Drug ineffective [None]
